FAERS Safety Report 6492685-3 (Version None)
Quarter: 2009Q4

REPORT INFORMATION
  Report Type: 
  Country: None (occurrence: None)
  Receive Date: 20091211
  Receipt Date: 20091211
  Transmission Date: 20100525
  Serious: No
  Sender: FDA-Public Use
  Company Number: None

PATIENT
  Age: 54 Year
  Sex: Male

DRUGS (3)
  1. DURAGESIC-100 [Suspect]
     Indication: PAIN
     Dosage: ALT 75 MCG AND 50 MCG DERMAL PATCH
     Dates: start: 20091001, end: 20091202
  2. DURAGESIC-100 [Suspect]
     Indication: SURGICAL FAILURE
     Dosage: ALT 75 MCG AND 50 MCG DERMAL PATCH
     Dates: start: 20091001, end: 20091202
  3. OXYCONTIN [Concomitant]

REACTIONS (3)
  - DEVICE MALFUNCTION [None]
  - INADEQUATE ANALGESIA [None]
  - WITHDRAWAL SYNDROME [None]
